FAERS Safety Report 7221280-3 (Version None)
Quarter: 2011Q1

REPORT INFORMATION
  Report Type: 
  Country: None (occurrence: None)
  Receive Date: 20110112
  Receipt Date: 20101006
  Transmission Date: 20110831
  Serious: No
  Sender: FDA-Public Use
  Company Number: US-BAYER-201022335BCC

PATIENT
  Sex: Male

DRUGS (1)
  1. ALEVE [Suspect]
     Dosage: 1 DF, BID
     Route: 048
     Dates: start: 20100701

REACTIONS (1)
  - ABDOMINAL DISCOMFORT [None]
